FAERS Safety Report 18108418 (Version 1)
Quarter: 2020Q3

REPORT INFORMATION
  Report Type: Spontaneous
  Country: US (occurrence: US)
  Receive Date: 20200804
  Receipt Date: 20200804
  Transmission Date: 20201103
  Serious: Yes (Hospitalization, Other)
  Sender: FDA-Public Use
  Company Number: US-ELI_LILLY_AND_COMPANY-US202007010285

PATIENT
  Sex: Male

DRUGS (3)
  1. HUMALOG [Suspect]
     Active Substance: INSULIN LISPRO
     Indication: TYPE 2 DIABETES MELLITUS
     Dosage: 20 U, UNKNOWN
     Route: 058
  2. TRESIBA [Concomitant]
     Active Substance: INSULIN DEGLUDEC
     Indication: TYPE 2 DIABETES MELLITUS
  3. PREDNISONE. [Suspect]
     Active Substance: PREDNISONE
     Indication: CHRONIC OBSTRUCTIVE PULMONARY DISEASE
     Dosage: UNK UNK, UNKNOWN
     Route: 065

REACTIONS (6)
  - Blood glucose increased [Recovering/Resolving]
  - Pancreatic disorder [Unknown]
  - Vision blurred [Unknown]
  - Chronic obstructive pulmonary disease [Unknown]
  - Weight increased [Not Recovered/Not Resolved]
  - Pollakiuria [Unknown]
